FAERS Safety Report 7990871-4 (Version None)
Quarter: 2011Q4

REPORT INFORMATION
  Report Type: 
  Country: None (occurrence: None)
  Receive Date: 20111219
  Receipt Date: 20111102
  Transmission Date: 20120403
  Serious: Yes (Death)
  Sender: FDA-Public Use
  Company Number: US-ROCHE-1008598

PATIENT
  Sex: Male
  Weight: 82 kg

DRUGS (5)
  1. ZOFRAN [Concomitant]
     Indication: NAUSEA
     Route: 048
  2. MORPHINE [Concomitant]
     Indication: BACK PAIN
     Route: 048
     Dates: start: 20111001
  3. ZELBORAF [Suspect]
     Indication: MALIGNANT MELANOMA
     Route: 048
     Dates: start: 20110801, end: 20111001
  4. TRAZODONE HCL [Concomitant]
     Route: 048
  5. FLEXERIL [Concomitant]
     Indication: BACK PAIN
     Route: 048

REACTIONS (3)
  - ATRIAL FIBRILLATION [None]
  - TRANSAMINASES ABNORMAL [None]
  - HYPOTENSION [None]
